FAERS Safety Report 5251706-6 (Version None)
Quarter: 2007Q1

REPORT INFORMATION
  Report Type: 
  Country: None (occurrence: None)
  Receive Date: 20070228
  Receipt Date: 20061030
  Transmission Date: 20070707
  Serious: No
  Sender: FDA-Public Use
  Company Number: US-GLAXOSMITHKLINE-A0624036A

PATIENT
  Age: 47 Year
  Sex: Female
  Weight: 54.5 kg

DRUGS (3)
  1. LAMICTAL [Suspect]
     Indication: BIPOLAR DISORDER
     Dosage: 150MG PER DAY
     Route: 048
  2. NEURONTIN [Concomitant]
     Dosage: 400MG AT NIGHT
     Route: 048
  3. XANAX [Concomitant]
     Dosage: .25MG AS REQUIRED
     Route: 048

REACTIONS (1)
  - MOUTH ULCERATION [None]
